FAERS Safety Report 9417775 (Version 1)
Quarter: 2013Q3

REPORT INFORMATION
  Report Type: Spontaneous
  Country: JP (occurrence: JP)
  Receive Date: 20130724
  Receipt Date: 20130724
  Transmission Date: 20140515
  Serious: Yes (Hospitalization)
  Sender: FDA-Public Use
  Company Number: JP-VIIV HEALTHCARE LIMITED-B0906496A

PATIENT
  Age: 67 Year
  Sex: Male

DRUGS (2)
  1. EPZICOM [Suspect]
     Indication: PRODUCT USED FOR UNKNOWN INDICATION
     Dosage: 1IUAX PER DAY
     Route: 048
     Dates: start: 201306, end: 20130704
  2. ISENTRESS [Concomitant]
     Dosage: 1IUAX TWICE PER DAY
     Route: 048
     Dates: start: 201306, end: 20130704

REACTIONS (4)
  - Rash [Recovered/Resolved]
  - Rash generalised [Recovered/Resolved]
  - Decreased immune responsiveness [Unknown]
  - Epstein-Barr virus infection [Unknown]
